FAERS Safety Report 10210405 (Version 1)
Quarter: 2014Q2

REPORT INFORMATION
  Report Type: Spontaneous
  Country: US (occurrence: None)
  Receive Date: 20140530
  Receipt Date: 20140530
  Transmission Date: 20141212
  Serious: Yes (Hospitalization)
  Sender: FDA-Public Use
  Company Number: None

PATIENT
  Age: 53 Year
  Sex: Female

DRUGS (1)
  1. MYCOPHENOLATE [Suspect]
     Indication: TRANSPLANT
     Dosage: 500 1 TWICE DAILY ORAL
     Route: 048
     Dates: start: 20140317

REACTIONS (1)
  - Investigation [None]
